FAERS Safety Report 5401426-X (Version None)
Quarter: 2007Q3

REPORT INFORMATION
  Report Type: 
  Country: None (occurrence: None)
  Receive Date: 20070726
  Receipt Date: 20070713
  Transmission Date: 20080115
  Serious: Yes (Hospitalization)
  Sender: FDA-Public Use
  Company Number: CIP07001400

PATIENT
  Age: 77 Year
  Sex: Female

DRUGS (5)
  1. RISEDRONATE SODIUM [Suspect]
     Indication: OSTEOPOROSIS
     Dosage: 2.5 MG DAILY, ORAL
     Route: 048
     Dates: start: 20061212, end: 20070319
  2. LOXONIN (LOXOPROFEN) [Concomitant]
  3. MUCOSTA (REBAMIPIDE) [Concomitant]
  4. MOBIC [Concomitant]
  5. IRGAS (IRSOGLADINE MALEATE) [Concomitant]

REACTIONS (4)
  - CHOLELITHIASIS [None]
  - CONDITION AGGRAVATED [None]
  - HYPERTENSION [None]
  - SHOCK [None]
